FAERS Safety Report 5363600-0 (Version None)
Quarter: 2007Q2

REPORT INFORMATION
  Report Type: 
  Country: None (occurrence: None)
  Receive Date: 20070620
  Receipt Date: 20070618
  Transmission Date: 20071010
  Serious: Yes (Life-Threatening, Disabling)
  Sender: FDA-Public Use
  Company Number: B0472291A

PATIENT
  Age: 74 Year
  Sex: Male
  Weight: 30 kg

DRUGS (8)
  1. AVANDIA [Suspect]
     Dosage: 8MG PER DAY
     Route: 065
     Dates: start: 20060701, end: 20061205
  2. PANTOPRAZOLE SODIUM [Concomitant]
     Dosage: 40MG FIFTEEN TIMES PER DAY
  3. GOPTEN [Concomitant]
  4. CARVEDILOL [Concomitant]
     Dosage: 25MG TWICE PER DAY
  5. SYMBICORT [Concomitant]
     Indication: ASTHMA
     Route: 055
  6. DAONIL [Concomitant]
     Dosage: 5MG TWICE PER DAY
  7. ASPIRIN [Concomitant]
  8. UREMIDE [Concomitant]
     Indication: LEFT VENTRICULAR FAILURE

REACTIONS (2)
  - DYSPNOEA [None]
  - PULMONARY CONGESTION [None]
